FAERS Safety Report 4643166-0 (Version None)
Quarter: 2005Q2

REPORT INFORMATION
  Report Type: 
  Country: None (occurrence: None)
  Receive Date: 20050422
  Receipt Date: 20050217
  Transmission Date: 20051028
  Serious: Yes (Other)
  Sender: FDA-Public Use
  Company Number: 2005033148

PATIENT
  Age: 77 Year
  Sex: Male
  Weight: 92.9874 kg

DRUGS (8)
  1. DETROL [Suspect]
     Indication: ILL-DEFINED DISORDER
     Dates: start: 20000101
  2. CARDURA [Suspect]
     Indication: ILL-DEFINED DISORDER
  3. BEXTRA [Suspect]
     Indication: ARTHRITIS
  4. CELEBREX [Suspect]
     Indication: ARTHRITIS
  5. CITALOPRAM HYDROBROMIDE [Concomitant]
  6. METOPROLOL (METROPROLOL0 [Concomitant]
  7. OLMESARTAN MEDOXOMIL (OLMESARTAN MEDOXOMIL) [Concomitant]
  8. ASPIRIN [Concomitant]

REACTIONS (7)
  - CONSTIPATION [None]
  - GALLBLADDER OPERATION [None]
  - INADEQUATE ANALGESIA [None]
  - MICTURITION URGENCY [None]
  - NOCTURIA [None]
  - POLLAKIURIA [None]
  - POST PROCEDURAL COMPLICATION [None]
